FAERS Safety Report 24620522 (Version 1)
Quarter: 2024Q4

REPORT INFORMATION
  Report Type: Spontaneous
  Country: DK (occurrence: DK)
  Receive Date: 20241114
  Receipt Date: 20241114
  Transmission Date: 20250115
  Serious: Yes (Hospitalization, Other)
  Sender: TEVA
  Company Number: DK-WARNER CHILCOTT-2014-001865

PATIENT
  Age: 62 Year
  Sex: Female
  Weight: 81 kg

DRUGS (10)
  1. TERIPARATIDE [Suspect]
     Active Substance: TERIPARATIDE
     Indication: Atypical femur fracture
     Route: 065
  2. ETIDRONIC ACID [Suspect]
     Active Substance: ETIDRONIC ACID
     Indication: Osteoporosis
     Route: 048
     Dates: start: 1999, end: 2003
  3. ALENDRONIC ACID [Suspect]
     Active Substance: ALENDRONIC ACID
     Indication: Osteoporosis
     Route: 065
     Dates: start: 2003
  4. ETHINYL ESTRADIOL\NORETHINDRONE ACETATE [Suspect]
     Active Substance: ETHINYL ESTRADIOL\NORETHINDRONE ACETATE
     Indication: Menopausal symptoms
     Route: 065
     Dates: start: 1984, end: 2002
  5. CHOLECALCIFEROL [Concomitant]
     Active Substance: CHOLECALCIFEROL
     Indication: Osteoporosis
  6. PAMIDRONATE DISODIUM [Suspect]
     Active Substance: PAMIDRONATE DISODIUM
     Indication: Osteoporosis
     Dosage: DOSAGE TEXT: 30 MG EVERY THREE MONTHS
     Route: 042
     Dates: start: 2006
  7. HYDROCHLOROTHIAZIDE [Concomitant]
     Active Substance: HYDROCHLOROTHIAZIDE
     Indication: Hypertension
     Route: 065
  8. ZOLEDRONIC ACID [Suspect]
     Active Substance: ZOLEDRONIC ACID
     Indication: Osteoporosis
     Route: 042
     Dates: start: 200709
  9. CALCIUM CARBONATE [Concomitant]
     Active Substance: CALCIUM CARBONATE
     Indication: Osteoporosis
     Dosage: DOSAGE TEXT: UNKNOWN DAILY
     Route: 048
     Dates: start: 1999
  10. ESTRADIOL\NORETHINDRONE [Suspect]
     Active Substance: ESTRADIOL\NORETHINDRONE
     Indication: Menopause
     Route: 065
     Dates: end: 2002

REACTIONS (8)
  - Femur fracture [Recovered/Resolved]
  - Off label use [Unknown]
  - Drug ineffective [Unknown]
  - Fracture nonunion [Recovered/Resolved]
  - Atypical femur fracture [Recovered/Resolved]
  - Low turnover osteopathy [Unknown]
  - Spinal compression fracture [Unknown]
  - Body height decreased [Unknown]

NARRATIVE: CASE EVENT DATE: 20050101
